FAERS Safety Report 19846775 (Version 1)
Quarter: 2021Q3

REPORT INFORMATION
  Report Type: Spontaneous
  Country: US (occurrence: US)
  Receive Date: 20210917
  Receipt Date: 20210917
  Transmission Date: 20211014
  Serious: No
  Sender: FDA-Public Use
  Company Number: US-RECKITT BENCKISER HEALTHCARE INT LIMITED-RB-80727-2021

PATIENT
  Age: 90 Year
  Sex: Female

DRUGS (5)
  1. CLONIDINE. [Concomitant]
     Active Substance: CLONIDINE
     Indication: BLOOD PRESSURE SYSTOLIC INCREASED
     Dosage: UNK, PRN
     Route: 065
  2. DIL [Concomitant]
     Indication: PRODUCT USED FOR UNKNOWN INDICATION
     Dosage: UNK
     Route: 065
  3. MUCINEX [Suspect]
     Active Substance: GUAIFENESIN
     Indication: SINUSITIS
     Dosage: UNK, TOOK ONE TABLET AT 11:00 AM AND ANOTHER AT 05:00 PM
     Route: 065
     Dates: start: 20201122
  4. MUCINEX [Suspect]
     Active Substance: GUAIFENESIN
     Indication: HEADACHE
  5. MUCINEX [Suspect]
     Active Substance: GUAIFENESIN
     Indication: TASTE DISORDER

REACTIONS (4)
  - Drug effective for unapproved indication [Recovering/Resolving]
  - Heart rate decreased [Recovering/Resolving]
  - Blood pressure decreased [Recovered/Resolved]
  - Product use in unapproved indication [Recovering/Resolving]

NARRATIVE: CASE EVENT DATE: 202011
